FAERS Safety Report 7462770-8 (Version None)
Quarter: 2011Q2

REPORT INFORMATION
  Report Type: 
  Country: None (occurrence: None)
  Receive Date: 20110506
  Receipt Date: 20110503
  Transmission Date: 20111010
  Serious: Yes (Other)
  Sender: FDA-Public Use
  Company Number: AU-PFIZER INC-2011095214

PATIENT
  Age: 70 Year
  Sex: Male

DRUGS (2)
  1. ZIPRASIDONE HYDROCHLORIDE [Suspect]
     Dosage: 20 MG, UNK
     Dates: start: 20110202
  2. PAROXETINE HCL [Suspect]
     Dosage: UNK

REACTIONS (7)
  - TONGUE DISORDER [None]
  - GLOSSODYNIA [None]
  - LACRIMATION INCREASED [None]
  - SWOLLEN TONGUE [None]
  - OROPHARYNGEAL PAIN [None]
  - EYE PAIN [None]
  - PHOTOPHOBIA [None]
